FAERS Safety Report 14204596 (Version 1)
Quarter: 2017Q4

REPORT INFORMATION
  Report Type: Spontaneous
  Country: US (occurrence: US)
  Receive Date: 20171120
  Receipt Date: 20171120
  Transmission Date: 20180321
  Serious: Yes (Other)
  Sender: FDA-Public Use
  Company Number: US-PFIZER INC-2017494446

PATIENT
  Age: 65 Year
  Sex: Female
  Weight: 54 kg

DRUGS (8)
  1. PREMPRO [Suspect]
     Active Substance: ESTROGENS, CONJUGATED\MEDROXYPROGESTERONE ACETATE
     Indication: HOT FLUSH
     Dosage: [ESTROGENS CONJUGATED 0.3MG]/[ MEDROXYPROGESTERONE ACETATE 1.5MG], 1X/DAY
     Route: 048
  2. MODAFINIL. [Concomitant]
     Active Substance: MODAFINIL
     Dosage: UNK
  3. VALACYCLOVIR [Concomitant]
     Active Substance: VALACYCLOVIR HYDROCHLORIDE
     Dosage: UNK
  4. GABAPENTIN. [Concomitant]
     Active Substance: GABAPENTIN
     Dosage: 600 MG, 3X/DAY
     Dates: start: 1996
  5. TOPAMAX [Concomitant]
     Active Substance: TOPIRAMATE
     Dosage: UNK
  6. PRAMIPEXOLE. [Concomitant]
     Active Substance: PRAMIPEXOLE
     Dosage: UNK
  7. METOPROLOL. [Concomitant]
     Active Substance: METOPROLOL
     Indication: BLOOD PRESSURE ABNORMAL
     Dosage: UNK
  8. AMLODIPINE [Concomitant]
     Active Substance: AMLODIPINE BESYLATE
     Indication: BLOOD PRESSURE ABNORMAL
     Dosage: UNK

REACTIONS (5)
  - Intentional product misuse [Unknown]
  - Drug dose omission [Unknown]
  - Drug dependence [Not Recovered/Not Resolved]
  - Condition aggravated [Unknown]
  - Multiple sclerosis [Unknown]
